FAERS Safety Report 13856290 (Version 2)
Quarter: 2017Q3

REPORT INFORMATION
  Report Type: Report from Study
  Country: US (occurrence: US)
  Receive Date: 20170810
  Receipt Date: 20170831
  Transmission Date: 20171127
  Serious: Yes (Hospitalization)
  Sender: FDA-Public Use
  Company Number: US-ACTELION-A-NJ2017-157854

PATIENT
  Age: 64 Year
  Sex: Female
  Weight: 80.27 kg

DRUGS (11)
  1. TRACLEER [Suspect]
     Active Substance: BOSENTAN
     Indication: PULMONARY ARTERIAL HYPERTENSION
     Dosage: 125 MG, QD
     Route: 048
     Dates: start: 20170301
  2. KLOR-CON [Concomitant]
     Active Substance: POTASSIUM CHLORIDE
  3. OMEPRAZOLE. [Concomitant]
     Active Substance: OMEPRAZOLE
  4. CALCIUM [Concomitant]
     Active Substance: CALCIUM
  5. FUROSEMIDE. [Concomitant]
     Active Substance: FUROSEMIDE
  6. WARFARIN [Concomitant]
     Active Substance: WARFARIN
  7. VELETRI [Suspect]
     Active Substance: EPOPROSTENOL
     Indication: PULMONARY ARTERIAL HYPERTENSION
     Dosage: 49 NG/KG, PER MIN
     Route: 042
  8. VITAMIN D [Concomitant]
     Active Substance: CHOLECALCIFEROL
  9. METHIMAZOLE. [Concomitant]
     Active Substance: METHIMAZOLE
  10. FLAXSEED [Concomitant]
     Active Substance: FLAX SEED
  11. MULTIVITAMIN [Concomitant]
     Active Substance: VITAMINS

REACTIONS (2)
  - Catheter placement [Unknown]
  - Device related thrombosis [Unknown]

NARRATIVE: CASE EVENT DATE: 20170802
